FAERS Safety Report 8342326-5 (Version None)
Quarter: 2012Q2

REPORT INFORMATION
  Report Type: 
  Country: None (occurrence: None)
  Receive Date: 20120507
  Receipt Date: 20120426
  Transmission Date: 20120825
  Serious: Yes (Hospitalization)
  Sender: FDA-Public Use
  Company Number: JP-BRISTOL-MYERS SQUIBB COMPANY-16143885

PATIENT
  Age: 66 Year
  Sex: Male
  Weight: 74 kg

DRUGS (5)
  1. LIVALO [Concomitant]
     Dosage: TABLET
     Dates: start: 20090313, end: 20110929
  2. RHYTHMY [Concomitant]
     Dosage: TABLET
     Dates: start: 20110719, end: 20110929
  3. MICARDIS [Concomitant]
     Dosage: TABLET
     Dates: start: 20070904, end: 20110929
  4. ABILIFY [Suspect]
     Indication: SCHIZOPHRENIA
     Dosage: 12MG 29JUL-08AUG11(11DAYS),18MG 09AUG-26SEP11(49DAYS), 24MG 27-29SEP(3DAYS)
     Route: 048
     Dates: start: 20110729, end: 20110929
  5. MAGMITT [Concomitant]
     Dosage: TABLET
     Dates: start: 20071207, end: 20110929

REACTIONS (2)
  - ABNORMAL BEHAVIOUR [None]
  - THINKING ABNORMAL [None]
